FAERS Safety Report 24033155 (Version 6)
Quarter: 2024Q3

REPORT INFORMATION
  Report Type: Spontaneous
  Country: JP (occurrence: JP)
  Receive Date: 20240701
  Receipt Date: 20240903
  Transmission Date: 20241017
  Serious: Yes (Death, Other)
  Sender: GENMAB
  Company Number: JP-GENMAB-2024-02231

PATIENT
  Age: 77 Year
  Sex: Male
  Weight: 52.8 kg

DRUGS (20)
  1. EPKINLY [Suspect]
     Active Substance: EPCORITAMAB-BYSP
     Indication: Diffuse large B-cell lymphoma
     Dosage: 0.16 MILLIGRAM, SINGLE
     Route: 058
     Dates: start: 20240624, end: 20240624
  2. RITUXIMAB [Suspect]
     Active Substance: RITUXIMAB
     Indication: Diffuse large B-cell lymphoma
     Dosage: UNK, R-CHOP, 100% DOSE, DEBULKING
     Dates: start: 20240617, end: 202406
  3. CYCLOPHOSPHAMIDE [Suspect]
     Active Substance: CYCLOPHOSPHAMIDE
     Indication: Diffuse large B-cell lymphoma
     Dosage: UNK, R-CHOP, 100% DOSE, DEBULKING
     Dates: start: 20240617, end: 202406
  4. DOXORUBICIN [Suspect]
     Active Substance: DOXORUBICIN
     Indication: Diffuse large B-cell lymphoma
     Dosage: UNK, R-CHOP, 100% DOSE, DEBULKING
     Dates: start: 20240617, end: 202406
  5. VINCRISTINE [Suspect]
     Active Substance: VINCRISTINE
     Indication: Diffuse large B-cell lymphoma
     Dosage: UNK, R-CHOP, 100% DOSE, DEBULKING
     Dates: start: 20240617, end: 202406
  6. PREDNISOLONE [Suspect]
     Active Substance: PREDNISOLONE
     Indication: Diffuse large B-cell lymphoma
     Dosage: UNK, R-CHOP, 100% DOSE, DEBULKING
     Dates: start: 202406, end: 202406
  7. FILGRASTIM [Concomitant]
     Active Substance: FILGRASTIM
     Dosage: 75 MICROGRAM
     Dates: start: 20240619, end: 20240623
  8. PREDONINE [Concomitant]
     Active Substance: PREDNISOLONE
     Indication: Prophylaxis
     Dosage: 100 MILLIGRAM, ON DAY 1 AND DAY 2 OF ADMINISTRATION OF EPKINLY
     Dates: start: 20240624, end: 20240625
  9. EBASTINE [Concomitant]
     Active Substance: EBASTINE
     Indication: Prophylaxis
     Dosage: ONE TABLET, ONE HOUR BEFORE ADMINISTRATION OF EPKINLY
     Dates: start: 20240624, end: 20240624
  10. CALONAL [Concomitant]
     Active Substance: ACETAMINOPHEN
     Indication: Prophylaxis
     Dosage: 500 MILLIGRAM, ONE HOUR BEFORE ADMINISTRATION OF EPKINLY
     Dates: start: 20240624, end: 20240624
  11. VONOPRAZAN FUMARATE [Concomitant]
     Active Substance: VONOPRAZAN FUMARATE
     Dosage: 20 MILLIGRAM, QD, 1 TABLET AFTER DINNER, FOR 7 DAYS, ADMINISTERED SEVERAL WEEKS BEFORE ADMINISTRATIO
     Dates: start: 2024
  12. ZOVIRAX [Concomitant]
     Active Substance: ACYCLOVIR
     Dosage: 200 MILLIGRAM, QD, 1 TABLET AFTER BREAKFAST, FOR 7 DAYS, ADMINISTERED SEVERAL WEEKS BEFORE ADMINISTR
     Dates: start: 2024
  13. SULFAMETHOXAZOLE\TRIMETHOPRIM [Concomitant]
     Active Substance: SULFAMETHOXAZOLE\TRIMETHOPRIM
     Dosage: MINI COMBINATION TABLETS, 2 TABLETS ONCE A DAY AFTER BREAKFAST, FOR 7 DAYS, ADMINISTERED SEVERAL WEE
  14. FEBUXOSTAT [Concomitant]
     Active Substance: FEBUXOSTAT
     Dosage: 60 MILLIGRAM, QD, 20MG 3T 1X
  15. BELSOMRA [Concomitant]
     Active Substance: SUVOREXANT
     Dosage: 15 MILLIGRAM, QD, 15MG 1T1X
  16. DAYVIGO [Concomitant]
     Active Substance: LEMBOREXANT
     Dosage: 5 MILLIGRAM, QD, 5MG 1T1X
  17. MAGNESIUM OXIDE [Concomitant]
     Active Substance: MAGNESIUM OXIDE
     Dosage: 660 MILLIGRAM, TID, 330MG 6T3X
  18. VILDAGLIPTIN [Concomitant]
     Active Substance: VILDAGLIPTIN
     Dosage: 100 MILLIGRAM, BID, 50MG 2T2X, ADMINISTERED SEVERAL WEEKS BEFORE ADMINISTRATION OF EPKINLY.
  19. REPAGLINIDE [Concomitant]
     Active Substance: REPAGLINIDE
     Dosage: 2 MILLIGRAM, TID, 0.5MG 4T3X, ADMINISTERED SEVERAL WEEKS BEFORE ADMINISTRATION OF EPKINLY.
  20. IMEGLIMIN HYDROCHLORIDE [Concomitant]
     Active Substance: IMEGLIMIN HYDROCHLORIDE
     Dosage: 2000 MILLIGRAM, BID, 500MG 4T2X, ADMINISTERED SEVERAL WEEKS BEFORE ADMINISTRATION OF EPKINLY.

REACTIONS (6)
  - Cytokine release syndrome [Fatal]
  - Septic shock [Fatal]
  - Pancytopenia [Fatal]
  - C-reactive protein increased [Unknown]
  - Constipation [Unknown]
  - Abdominal pain [Unknown]

NARRATIVE: CASE EVENT DATE: 20240625
